FAERS Safety Report 4279072-3 (Version None)
Quarter: 2004Q1

REPORT INFORMATION
  Report Type: 
  Country: None (occurrence: None)
  Receive Date: 20040126
  Receipt Date: 20031205
  Transmission Date: 20041129
  Serious: Yes (Hospitalization)
  Sender: FDA-Public Use
  Company Number: PHRM2003FR03235

PATIENT
  Age: 91 Year
  Sex: Female

DRUGS (6)
  1. TEGRETOL [Suspect]
     Dosage: 100 MG/DAY
     Route: 048
  2. OROCAL D3 [Suspect]
     Dosage: 2 TAB/DAY
     Route: 048
  3. ZOLOFT [Suspect]
     Dosage: 1 CAPS/DAY
     Route: 048
     Dates: start: 20010101
  4. ARICEPT [Suspect]
     Dosage: 10 MG/DAY
     Route: 048
  5. LERCAN [Suspect]
     Dosage: 10 MG/DAY
     Route: 048
  6. ACTONEL [Suspect]
     Dosage: 2 AMP/WEEK
     Route: 048

REACTIONS (5)
  - CEREBRAL HAEMATOMA [None]
  - CONFUSIONAL STATE [None]
  - DEPRESSED LEVEL OF CONSCIOUSNESS [None]
  - HYPOCHLORAEMIA [None]
  - HYPONATRAEMIA [None]
